FAERS Safety Report 4317236-0 (Version None)
Quarter: 2004Q1

REPORT INFORMATION
  Report Type: 
  Country: None (occurrence: None)
  Receive Date: 20040312
  Receipt Date: 20040310
  Transmission Date: 20041129
  Serious: Yes (Other)
  Sender: FDA-Public Use
  Company Number: KII-2003-0001670

PATIENT
  Age: 32 Year
  Sex: Female

DRUGS (6)
  1. OXYCODONE HCL [Suspect]
     Indication: DRUG USE FOR UNKNOWN INDICATION
     Dosage: ORAL
     Route: 048
  2. HYDROMORPHONE HYDROCHLORIDE [Suspect]
     Indication: DRUG USE FOR UNKNOWN INDICATION
     Dosage: ORAL
     Route: 048
  3. OPIOIDS () [Suspect]
     Indication: DRUG USE FOR UNKNOWN INDICATION
  4. ACETAMINOPHEN [Suspect]
     Indication: DRUG USE FOR UNKNOWN INDICATION
  5. ACETYLSALICYLIC ACID SRT [Suspect]
     Indication: DRUG USE FOR UNKNOWN INDICATION
  6. BENZODIAZEPINE DERIVATIVES [Suspect]

REACTIONS (5)
  - BLOOD GLUCOSE INCREASED [None]
  - DRUG SCREEN POSITIVE [None]
  - HYPOAESTHESIA [None]
  - SENSORY DISTURBANCE [None]
  - SOMNOLENCE [None]
